FAERS Safety Report 7138356-1 (Version None)
Quarter: 2010Q4

REPORT INFORMATION
  Report Type: 
  Country: None (occurrence: None)
  Receive Date: 20101206
  Receipt Date: 20101123
  Transmission Date: 20110411
  Serious: Yes (Hospitalization)
  Sender: FDA-Public Use
  Company Number: GXKR2010ES12406

PATIENT
  Age: 73 Year
  Sex: Female

DRUGS (10)
  1. METFORMIN HCL [Suspect]
     Dosage: 850 MG, TID
     Route: 065
  2. BISOPROLOL FUMARATE [Concomitant]
  3. TORASEMIDE [Concomitant]
  4. ACENOCOUMAROL [Concomitant]
  5. DIGOXIN [Concomitant]
  6. ESCITALOPRAM [Concomitant]
  7. LORMETAZEPAM [Concomitant]
  8. TIOTROPIUM BROMIDE [Concomitant]
  9. INSULIN GLARGINE [Concomitant]
  10. TERBUTALINE SULFATE [Concomitant]

REACTIONS (20)
  - ABDOMINAL PAIN UPPER [None]
  - ANAEMIA [None]
  - ARRHYTHMIA [None]
  - ASTHENIA [None]
  - CONTINUOUS HAEMODIAFILTRATION [None]
  - DECREASED APPETITE [None]
  - DEHYDRATION [None]
  - DYSPNOEA [None]
  - HEPATOTOXICITY [None]
  - LACTIC ACIDOSIS [None]
  - LEUKOCYTOSIS [None]
  - NEUTROPHILIA [None]
  - PAIN [None]
  - PLEURAL EFFUSION [None]
  - POLYDIPSIA [None]
  - POLYURIA [None]
  - RENAL FAILURE ACUTE [None]
  - THROMBOCYTOPENIA [None]
  - TRANSFERRIN INCREASED [None]
  - VOMITING [None]
